FAERS Safety Report 19242057 (Version 2)
Quarter: 2021Q2

REPORT INFORMATION
  Report Type: Spontaneous
  Country: NL (occurrence: NL)
  Receive Date: 20210511
  Receipt Date: 20210525
  Transmission Date: 20210717
  Serious: Yes (Hospitalization)
  Sender: FDA-Public Use
  Company Number: NL-TEVA-2021-NL-1908710

PATIENT
  Age: 29 Year
  Sex: Female
  Weight: 56 kg

DRUGS (5)
  1. CALCIUMCARB/COLECALC KAUWTB 2,5G/880IE (1000MG CA) / CALCI?BONED3 ORAN [Concomitant]
     Dosage: 2.5 G (GRAM) / 880 UNITS; THERAPY START DATE; THERAPY END DATE : ASKED BUT UNKNOWN
  2. MYCOFENOLZUUR [MYCOPHENOLATE SODIUM] [Suspect]
     Active Substance: MYCOPHENOLATE SODIUM
     Dosage: 360 MILLIGRAM DAILY; THERAPY END DATE : ASKED BUT UNKNOWN
     Dates: start: 20200109
  3. PANTOPRAZOL TABLET MSR 20MG / MAAGZUURTABLET PANTOPRAZOL HTP TABLET MS [Concomitant]
     Dosage: 40 MG; THERAPY START DATE; THERAPY END DATE : ASKED BUT UNKNOWN
  4. TACROLIMUS CAPSULE MGA 1MG (DAILIPORT/ADVAGRAF) / ADVAGRAF CAPSULE MVA [Suspect]
     Active Substance: TACROLIMUS
     Dosage: 2,5MG; THERAPY END DATE : ASKED BUT UNKNOWN?TACROLIMUS CAPSULE MGA 1MG (DAILIPORT/ADVAGRAF) / ADVAGR
     Dates: start: 20200109
  5. PREDNISOLON TABLET  2,5MG / BRAND NAME NOT SPECIFIED [Suspect]
     Active Substance: PREDNISOLONE
     Dosage: 2,5 MG; THERAPY END DATE : ASKED BUT UNKNOWN
     Dates: start: 20200109

REACTIONS (1)
  - Pyelonephritis [Recovering/Resolving]

NARRATIVE: CASE EVENT DATE: 20210411
